FAERS Safety Report 11199828 (Version 2)
Quarter: 2015Q2

REPORT INFORMATION
  Report Type: Spontaneous
  Country: US (occurrence: US)
  Receive Date: 20150618
  Receipt Date: 20150625
  Transmission Date: 20150821
  Serious: Yes (Life-Threatening, Other)
  Sender: FDA-Public Use
  Company Number: US-PFIZER INC-2015201080

PATIENT
  Age: 52 Year
  Sex: Female

DRUGS (6)
  1. DIAZEPAM. [Concomitant]
     Active Substance: DIAZEPAM
     Dosage: 12.5 MG, UNK
     Route: 042
  2. EPINEPHRINE. [Interacting]
     Active Substance: EPINEPHRINE
     Indication: LOCAL ANAESTHESIA
     Dosage: 13 ML, UNK (1 :200,000)
  3. LIDOCAINE. [Concomitant]
     Active Substance: LIDOCAINE
     Indication: LOCAL ANAESTHESIA
     Dosage: UNK
  4. HYDROXYLINE [Concomitant]
     Dosage: 100 MG, UNK
     Route: 030
  5. MEPERIDINE [Concomitant]
     Active Substance: MEPERIDINE
     Dosage: 75 MG, UNK
     Route: 030
  6. PROPANOLOL HCL [Suspect]
     Active Substance: PROPRANOLOL HYDROCHLORIDE
     Indication: HYPERTENSION
     Dosage: 40 MG, 2X/DAY
     Route: 048

REACTIONS (6)
  - Hypertension [Recovered/Resolved]
  - Drug interaction [Recovered/Resolved]
  - Acute respiratory distress syndrome [Recovered/Resolved]
  - Condition aggravated [Recovered/Resolved]
  - Cardiac arrest [Recovered/Resolved]
  - Ventricular fibrillation [Recovered/Resolved]
